FAERS Safety Report 8128024-1 (Version None)
Quarter: 2012Q1

REPORT INFORMATION
  Report Type: 
  Country: None (occurrence: None)
  Receive Date: 20120210
  Receipt Date: 20120202
  Transmission Date: 20120608
  Serious: Yes (Hospitalization)
  Sender: FDA-Public Use
  Company Number: US-JNJFOC-20120202343

PATIENT

DRUGS (1)
  1. XARELTO [Suspect]
     Indication: JOINT ARTHROPLASTY
     Route: 048

REACTIONS (1)
  - PULMONARY EMBOLISM [None]
